FAERS Safety Report 26167635 (Version 1)
Quarter: 2025Q4

REPORT INFORMATION
  Report Type: Spontaneous
  Country: US (occurrence: US)
  Receive Date: 20251217
  Receipt Date: 20251217
  Transmission Date: 20260118
  Serious: Yes (Other)
  Sender: PACIRA
  Company Number: US-ORG100016242-2025000126

PATIENT
  Sex: Female

DRUGS (2)
  1. EXPAREL [Suspect]
     Active Substance: BUPIVACAINE
     Indication: Pain management
     Dosage: 10 ML ON BOTH SIDES OF INCISION, TOTAL OF 20ML
     Route: 065
     Dates: start: 2025, end: 2025
  2. BUPIVACAINE [Suspect]
     Active Substance: BUPIVACAINE
     Indication: Pain management
     Dosage: 10 ML ON BOTH SIDES OF INCISION, TOTAL OF 20ML
     Route: 065
     Dates: start: 2025, end: 2025

REACTIONS (3)
  - Procedural complication [Recovered/Resolved]
  - Inappropriate schedule of product administration [Unknown]
  - Labelled drug-drug interaction medication error [Unknown]

NARRATIVE: CASE EVENT DATE: 20250101
